FAERS Safety Report 10374110 (Version 1)
Quarter: 2014Q3

REPORT INFORMATION
  Report Type: Report from Study
  Country: CL (occurrence: CL)
  Receive Date: 20140810
  Receipt Date: 20140810
  Transmission Date: 20150326
  Serious: Yes (Other)
  Sender: FDA-Public Use
  Company Number: CL-ROCHE-1447359

PATIENT
  Sex: Female

DRUGS (1)
  1. XELODA [Suspect]
     Active Substance: CAPECITABINE
     Indication: BREAST CANCER
     Dosage: 14 DAYS PER CYCLE
     Route: 048
     Dates: start: 20140515, end: 20140625

REACTIONS (1)
  - Immune system disorder [Not Recovered/Not Resolved]

NARRATIVE: CASE EVENT DATE: 20140625
